FAERS Safety Report 13545970 (Version 1)
Quarter: 2017Q2

REPORT INFORMATION
  Report Type: Spontaneous
  Country: ES (occurrence: ES)
  Receive Date: 20170515
  Receipt Date: 20170515
  Transmission Date: 20170830
  Serious: Yes (Hospitalization)
  Sender: FDA-Public Use
  Company Number: ES-ABBVIE-17P-144-1970527-00

PATIENT
  Age: 61 Year

DRUGS (6)
  1. CEMIDON 300 B6 [Suspect]
     Active Substance: ISONIAZID
     Indication: LATENT TUBERCULOSIS
     Route: 048
     Dates: start: 20161227, end: 20170402
  2. PREDNISONA [Concomitant]
     Active Substance: PREDNISONE
     Indication: SPONDYLOARTHROPATHY
  3. PREDNISONA [Concomitant]
     Active Substance: PREDNISONE
     Indication: HLA-B*27 POSITIVE
     Route: 048
     Dates: start: 20151214
  4. HUMIRA [Suspect]
     Active Substance: ADALIMUMAB
     Indication: HLA-B*27 POSITIVE
     Route: 058
     Dates: start: 20170130, end: 20170411
  5. HUMIRA [Suspect]
     Active Substance: ADALIMUMAB
     Indication: UVEITIS
  6. HUMIRA [Suspect]
     Active Substance: ADALIMUMAB
     Indication: SPONDYLOARTHROPATHY

REACTIONS (1)
  - Hepatitis cholestatic [Recovering/Resolving]

NARRATIVE: CASE EVENT DATE: 20170428
